FAERS Safety Report 15368358 (Version 1)
Quarter: 2018Q3

REPORT INFORMATION
  Report Type: Spontaneous
  Country: DK (occurrence: DK)
  Receive Date: 20180910
  Receipt Date: 20180910
  Transmission Date: 20181010
  Serious: Yes (Hospitalization, Other)
  Sender: FDA-Public Use
  Company Number: DK-SA-2018SA161954

PATIENT
  Age: 81 Year
  Sex: Female
  Weight: 151 kg

DRUGS (23)
  1. CARBOPLATIN. [Suspect]
     Active Substance: CARBOPLATIN
     Indication: CHRONIC LYMPHOCYTIC LEUKAEMIA
  2. VINCRISTINE SULFATE. [Suspect]
     Active Substance: VINCRISTINE SULFATE
  3. CYTARABINE. [Suspect]
     Active Substance: CYTARABINE
     Indication: PRODUCT USED FOR UNKNOWN INDICATION
  4. TEMOZOLOMIDE. [Suspect]
     Active Substance: TEMOZOLOMIDE
     Indication: CHRONIC LYMPHOCYTIC LEUKAEMIA
  5. GLIVEC [Suspect]
     Active Substance: IMATINIB MESYLATE
     Indication: CHRONIC LYMPHOCYTIC LEUKAEMIA
     Route: 048
  6. CYCLOPHOSPHAMIDE. [Suspect]
     Active Substance: CYCLOPHOSPHAMIDE
     Indication: CHRONIC LYMPHOCYTIC LEUKAEMIA
  7. ALENDRONAT BLUEFISH [Suspect]
     Active Substance: ALENDRONATE SODIUM
     Indication: OSTEOPOROSIS
     Dosage: 70 MG, QW
     Route: 048
  8. TRASTUZUMAB. [Suspect]
     Active Substance: TRASTUZUMAB
     Indication: METASTASES TO LUNG
  9. CISPLATIN. [Suspect]
     Active Substance: CISPLATIN
     Indication: CHRONIC LYMPHOCYTIC LEUKAEMIA
  10. HERCEPTIN [Suspect]
     Active Substance: TRASTUZUMAB
     Indication: CHRONIC LYMPHOCYTIC LEUKAEMIA
  11. OXALIPLATIN. [Suspect]
     Active Substance: OXALIPLATIN
     Indication: PRODUCT USED FOR UNKNOWN INDICATION
  12. FOSAMAX [Suspect]
     Active Substance: ALENDRONATE SODIUM
     Indication: CHRONIC LYMPHOCYTIC LEUKAEMIA
     Dosage: 70 MG, QW TABLET
     Route: 048
     Dates: start: 20150409
  13. VINORELBINE TARTRATE. [Suspect]
     Active Substance: VINORELBINE TARTRATE
     Indication: CHRONIC LYMPHOCYTIC LEUKAEMIA
  14. THALIDOMIDE [Suspect]
     Active Substance: THALIDOMIDE
     Indication: CHRONIC LYMPHOCYTIC LEUKAEMIA
  15. IRINOTECAN [Suspect]
     Active Substance: IRINOTECAN
     Indication: CHRONIC LYMPHOCYTIC LEUKAEMIA
  16. CAPECITABINE. [Suspect]
     Active Substance: CAPECITABINE
     Indication: CHRONIC LYMPHOCYTIC LEUKAEMIA
  17. BLINATUMOMAB [Suspect]
     Active Substance: BLINATUMOMAB
     Indication: PRODUCT USED FOR UNKNOWN INDICATION
  18. PEMETREXED DISODIUM [Suspect]
     Active Substance: PEMETREXED DISODIUM
     Indication: CHRONIC LYMPHOCYTIC LEUKAEMIA
  19. XGEVA [Suspect]
     Active Substance: DENOSUMAB
     Indication: METASTASES TO BONE
  20. ALKERANA [Suspect]
     Active Substance: MELPHALAN
     Indication: PRODUCT USED FOR UNKNOWN INDICATION
  21. PREDNISOLONE. [Suspect]
     Active Substance: PREDNISOLONE
     Indication: PRODUCT USED FOR UNKNOWN INDICATION
     Dosage: 7.5 MG, QD
     Route: 048
     Dates: start: 20151021, end: 20161031
  22. XGEVA [Suspect]
     Active Substance: DENOSUMAB
     Dosage: 120 MG, UNK
     Dates: start: 20150409, end: 20170305
  23. FOSAMAX [Suspect]
     Active Substance: ALENDRONATE SODIUM
     Indication: OSTEOPOROSIS

REACTIONS (2)
  - Osteonecrosis of jaw [Recovered/Resolved]
  - Jaw operation [Unknown]

NARRATIVE: CASE EVENT DATE: 20151215
